FAERS Safety Report 6264247-4 (Version None)
Quarter: 2009Q3

REPORT INFORMATION
  Report Type: 
  Country: None (occurrence: None)
  Receive Date: 20090710
  Receipt Date: 20090709
  Transmission Date: 20100115
  Serious: Yes (Death)
  Sender: FDA-Public Use
  Company Number: US-ASTRAZENECA-2009UW08730

PATIENT
  Age: 27 Year
  Sex: Female
  Weight: 130 kg

DRUGS (8)
  1. SEROQUEL [Suspect]
     Route: 048
  2. SEROQUEL [Suspect]
     Route: 048
     Dates: start: 20061001
  3. OXYCODONE [Suspect]
     Route: 065
  4. WELLBUTRIN XL [Suspect]
     Route: 048
  5. WELLBUTRIN XL [Suspect]
     Route: 048
  6. KLONOPIN [Concomitant]
     Route: 048
  7. CYMBALTA [Concomitant]
     Route: 048
  8. CELEXA [Concomitant]
     Route: 048

REACTIONS (10)
  - ASTHENIA [None]
  - COMPLETED SUICIDE [None]
  - DISTURBANCE IN ATTENTION [None]
  - DRUG TOXICITY [None]
  - HALLUCINATION [None]
  - INCREASED APPETITE [None]
  - INSOMNIA [None]
  - NIGHTMARE [None]
  - OVERDOSE [None]
  - WEIGHT INCREASED [None]
